FAERS Safety Report 7207012-3 (Version None)
Quarter: 2011Q1

REPORT INFORMATION
  Report Type: 
  Country: None (occurrence: None)
  Receive Date: 20110103
  Receipt Date: 20101221
  Transmission Date: 20110831
  Serious: Yes (Other)
  Sender: FDA-Public Use
  Company Number: B0653068A

PATIENT
  Sex: Female
  Weight: 67 kg

DRUGS (1)
  1. ZOFRAN [Suspect]
     Dosage: 16MG PER DAY
     Route: 065

REACTIONS (2)
  - DRUG EXPOSURE DURING PREGNANCY [None]
  - CHOLESTASIS [None]
